FAERS Safety Report 5734038-9 (Version None)
Quarter: 2008Q2

REPORT INFORMATION
  Report Type: 
  Country: None (occurrence: None)
  Receive Date: 20080509
  Receipt Date: 20080430
  Transmission Date: 20081010
  Serious: Yes (Hospitalization)
  Sender: FDA-Public Use
  Company Number: DE-PFIZER INC-2008038219

PATIENT
  Sex: Female
  Weight: 56 kg

DRUGS (17)
  1. UNACID INJECTION [Suspect]
     Indication: PNEUMONIA BACTERIAL
     Route: 042
     Dates: start: 20070615, end: 20070625
  2. UNACID INJECTION [Suspect]
  3. AVELOX [Suspect]
     Indication: PNEUMONIA BACTERIAL
     Route: 048
     Dates: start: 20070614, end: 20070615
  4. CLARITHROMYCIN [Suspect]
     Indication: PNEUMONIA BACTERIAL
     Route: 042
     Dates: start: 20070615, end: 20070618
  5. CLARITHROMYCIN [Suspect]
     Route: 048
     Dates: start: 20070619, end: 20070626
  6. DIAZEPAM [Concomitant]
     Route: 048
     Dates: start: 20070613, end: 20070619
  7. KALINOR [Concomitant]
     Route: 048
     Dates: start: 20070615, end: 20070619
  8. IBUPROFEN TABLETS [Concomitant]
     Route: 048
     Dates: start: 20070615, end: 20070619
  9. AMITRIPTYLINE HCL [Concomitant]
     Route: 048
     Dates: start: 20070617, end: 20070617
  10. METAMIZOLE SODIUM [Concomitant]
     Route: 042
     Dates: start: 20070613, end: 20070616
  11. TRAMADOL HCL [Concomitant]
     Route: 042
     Dates: start: 20070613, end: 20070614
  12. POLYBION [Concomitant]
     Route: 042
     Dates: start: 20070613, end: 20070616
  13. ENOXAPARIN SODIUM [Concomitant]
     Route: 058
     Dates: start: 20070613, end: 20070619
  14. NOVALDIN INJ [Concomitant]
     Route: 048
     Dates: start: 20070611, end: 20070617
  15. ACETAMINOPHEN [Concomitant]
     Dates: start: 20070615, end: 20070616
  16. METOCLOPRAMIDE HYDROCHLORIDE [Concomitant]
     Route: 048
     Dates: start: 20070614, end: 20070614
  17. TUSSAMAG SYRUP [Concomitant]
     Route: 048
     Dates: start: 20070616, end: 20070616

REACTIONS (2)
  - HEPATITIS ACUTE [None]
  - RASH [None]
